FAERS Safety Report 6508708-9 (Version None)
Quarter: 2009Q4

REPORT INFORMATION
  Report Type: 
  Country: None (occurrence: None)
  Receive Date: 20091221
  Receipt Date: 20090810
  Transmission Date: 20100525
  Serious: No
  Sender: FDA-Public Use
  Company Number: US-ASTRAZENECA-2009SE07415

PATIENT
  Sex: Male

DRUGS (5)
  1. CRESTOR [Suspect]
     Route: 048
  2. METOPROLOL SUCCINATE [Suspect]
  3. BABY ASPRIN [Concomitant]
  4. FISH OIL [Concomitant]
  5. COUMADIN [Concomitant]

REACTIONS (1)
  - INTERNATIONAL NORMALISED RATIO INCREASED [None]
